FAERS Safety Report 19389355 (Version 1)
Quarter: 2021Q2

REPORT INFORMATION
  Report Type: Report from Study
  Country: US (occurrence: US)
  Receive Date: 20210608
  Receipt Date: 20210608
  Transmission Date: 20210717
  Serious: Yes (Other)
  Sender: FDA-Public Use
  Company Number: US-BAYER-2021-134317

PATIENT
  Sex: Male

DRUGS (1)
  1. ADEMPAS [Suspect]
     Active Substance: RIOCIGUAT
     Dosage: UNK
     Dates: start: 20210406

REACTIONS (5)
  - Hypersomnia [None]
  - Intentional product use issue [None]
  - Rehabilitation therapy [Not Recovered/Not Resolved]
  - Post-traumatic pain [None]
  - Fall [None]
